FAERS Safety Report 7803539-1 (Version None)
Quarter: 2011Q4

REPORT INFORMATION
  Report Type: 
  Country: None (occurrence: None)
  Receive Date: 20111009
  Receipt Date: 20090609
  Transmission Date: 20120403
  Serious: Yes (Other)
  Sender: FDA-Public Use
  Company Number: PHHY2009TW68982

PATIENT

DRUGS (1)
  1. GLEEVEC [Suspect]
     Indication: CHRONIC MYELOID LEUKAEMIA
     Dosage: 4 PILLS

REACTIONS (9)
  - DYSHIDROSIS [None]
  - MYALGIA [None]
  - MUSCULOSKELETAL PAIN [None]
  - APPETITE DISORDER [None]
  - SLEEP DISORDER [None]
  - ALANINE AMINOTRANSFERASE [None]
  - GENE MUTATION IDENTIFICATION TEST POSITIVE [None]
  - HYPERAESTHESIA [None]
  - MUSCLE SPASMS [None]
